FAERS Safety Report 8283251-8 (Version None)
Quarter: 2012Q2

REPORT INFORMATION
  Report Type: 
  Country: None (occurrence: None)
  Receive Date: 20120413
  Receipt Date: 20120411
  Transmission Date: 20120825
  Serious: No
  Sender: FDA-Public Use
  Company Number: US-TEVA-332993USA

PATIENT
  Sex: Female
  Weight: 90.8 kg

DRUGS (3)
  1. EPINEPHRINE [Concomitant]
  2. FLUTICASONE PROPIONATE/SALMETEROL [Concomitant]
  3. PROAIR HFA [Suspect]
     Indication: ASTHMA
     Dates: start: 20120310, end: 20120311

REACTIONS (1)
  - RESPIRATORY TRACT IRRITATION [None]
